FAERS Safety Report 8834784 (Version 3)
Quarter: 2012Q4

REPORT INFORMATION
  Report Type: Report from Study
  Country: ES (occurrence: ES)
  Receive Date: 20121010
  Receipt Date: 20121026
  Transmission Date: 20130627
  Serious: Yes (Hospitalization)
  Sender: FDA-Public Use
  Company Number: ES-GLAXOSMITHKLINE-Z0012995C

PATIENT
  Age: 61 Year
  Sex: Female
  Weight: 109 kg

DRUGS (7)
  1. PLACEBO [Suspect]
     Indication: RHEUMATOID ARTHRITIS
     Route: 042
     Dates: start: 20090112
  2. OFATUMUMAB [Suspect]
     Indication: RHEUMATOID ARTHRITIS
     Route: 042
     Dates: start: 20090701, end: 20110420
  3. ENOXAPARIN [Concomitant]
     Indication: THROMBOSIS PROPHYLAXIS
     Dosage: 40MG Per day
     Route: 058
     Dates: start: 20120731, end: 20120812
  4. OMEPRAZOLE [Concomitant]
     Indication: PROPHYLAXIS
     Dosage: 20MG Per day
     Route: 048
     Dates: start: 20120801, end: 20120801
  5. OMEPRAZOLE [Concomitant]
     Indication: PROPHYLAXIS
     Dosage: 40MG Per day
     Route: 042
     Dates: start: 20120801, end: 20120812
  6. ONDANSETRON [Concomitant]
     Indication: VOMITING
     Dosage: 4MG As required
     Route: 042
     Dates: start: 20120801, end: 20120812
  7. METOCLOPRAMIDE [Concomitant]
     Indication: VOMITING
     Dosage: 10MG As required
     Route: 042
     Dates: start: 20120801, end: 20120811

REACTIONS (1)
  - Septic shock [Recovered/Resolved]
